FAERS Safety Report 20862282 (Version 2)
Quarter: 2022Q2

REPORT INFORMATION
  Report Type: Spontaneous
  Country: ZA (occurrence: ZA)
  Receive Date: 20220523
  Receipt Date: 20220614
  Transmission Date: 20220721
  Serious: Yes (Hospitalization, Other)
  Sender: FDA-Public Use
  Company Number: ZA-CIPLA LTD.-2022ZA03188

PATIENT

DRUGS (9)
  1. WARFARIN [Suspect]
     Active Substance: WARFARIN
     Indication: Atrial fibrillation
     Dosage: 5 MILLIGRAM, QD
     Route: 048
     Dates: start: 20220122, end: 20220215
  2. INCLISIRAN [Suspect]
     Active Substance: INCLISIRAN
     Indication: Arteriosclerosis
     Dosage: 1.5 MILLILITER, 6 MONTHLY
     Route: 058
     Dates: start: 20190806
  3. INCLISIRAN [Suspect]
     Active Substance: INCLISIRAN
     Dosage: 1.5 MILLILITER, 6 MONTHLY, ON DAY 90
     Route: 058
  4. INCLISIRAN [Suspect]
     Active Substance: INCLISIRAN
     Dosage: 1.5 MILLILITER, 6 MONTHLY, ON DAY 270
     Route: 058
  5. INCLISIRAN [Suspect]
     Active Substance: INCLISIRAN
     Dosage: 1.5 MILLILITER, 6 MONTHLY, ON DAY 450
     Route: 058
  6. INCLISIRAN [Suspect]
     Active Substance: INCLISIRAN
     Dosage: 1.5 MILLILITER, 6 MONTHLY, ON DAY 630
     Route: 058
  7. INCLISIRAN [Suspect]
     Active Substance: INCLISIRAN
     Dosage: 1.5 MILLILITER, 6 MONTHLY, ON DAY 810
     Route: 058
  8. INCLISIRAN [Suspect]
     Active Substance: INCLISIRAN
     Dosage: 1.5 MILLILITER, 6 MONTHLY, ON DAY 990
     Route: 058
  9. XARELTO [Concomitant]
     Active Substance: RIVAROXABAN
     Indication: Product used for unknown indication
     Dosage: UNK
     Route: 065
     Dates: start: 20220222

REACTIONS (2)
  - Toxicity to various agents [Recovered/Resolved]
  - Anticoagulation drug level above therapeutic [Recovered/Resolved]

NARRATIVE: CASE EVENT DATE: 20220201
